FAERS Safety Report 9456230 (Version 1)
Quarter: 2013Q3

REPORT INFORMATION
  Report Type: Spontaneous
  Country: PL (occurrence: PL)
  Receive Date: 20130813
  Receipt Date: 20130813
  Transmission Date: 20140515
  Serious: Yes (Life-Threatening)
  Sender: FDA-Public Use
  Company Number: PL-ACTAVIS-2013-14093

PATIENT
  Age: 54 Year
  Sex: Female
  Weight: 51 kg

DRUGS (1)
  1. PACLITAXEL (UNKNOWN) [Suspect]
     Indication: PRODUCT USED FOR UNKNOWN INDICATION
     Dosage: 269.73 MG, UNKNOWN
     Route: 042
     Dates: start: 20130705

REACTIONS (4)
  - Pharyngeal oedema [Recovered/Resolved]
  - Wheezing [Recovered/Resolved]
  - Cyanosis [Recovered/Resolved]
  - Erythema [Recovered/Resolved]
